FAERS Safety Report 8381385-0 (Version None)
Quarter: 2012Q2

REPORT INFORMATION
  Report Type: 
  Country: None (occurrence: None)
  Receive Date: 20120523
  Receipt Date: 20120517
  Transmission Date: 20120825
  Serious: Yes (Hospitalization, Other)
  Sender: FDA-Public Use
  Company Number: PHHY2012BR033176

PATIENT
  Age: 76 Year
  Sex: Female
  Weight: 67 kg

DRUGS (6)
  1. AMLODIPINE BESYLATE [Suspect]
     Indication: HYPERTENSION
     Dosage: 20 MG, UNK
  2. ALOFODIPINA [Concomitant]
  3. FORADIL [Suspect]
     Indication: LUNG DISORDER
  4. LOSARTAN POTASSIUM [Suspect]
     Indication: HYPERTENSION
     Dosage: 1 DF, BID
  5. DOMPERIDONE [Concomitant]
     Dosage: 1 DF, UNK
  6. RANITIDINE [Concomitant]
     Indication: DYSPEPSIA
     Dosage: 1 DF, PRN

REACTIONS (5)
  - SWELLING [None]
  - FATIGUE [None]
  - MALAISE [None]
  - CARDIAC DISORDER [None]
  - DYSPNOEA [None]
